FAERS Safety Report 7645470-0 (Version None)
Quarter: 2011Q3

REPORT INFORMATION
  Report Type: 
  Country: None (occurrence: None)
  Receive Date: 20110729
  Receipt Date: 20110718
  Transmission Date: 20111222
  Serious: Yes (Life-Threatening, Hospitalization, Other)
  Sender: FDA-Public Use
  Company Number: FR-ELI_LILLY_AND_COMPANY-FR201107004430

PATIENT
  Sex: Female

DRUGS (9)
  1. LOXAPINE HCL [Concomitant]
     Indication: BIPOLAR DISORDER
     Dosage: 40 DF, QD
     Route: 048
     Dates: start: 20110629, end: 20110704
  2. RAMIPRIL [Concomitant]
     Dosage: 5 MG, QD
     Dates: start: 20030101, end: 20110704
  3. LASIX [Concomitant]
     Dosage: 20 MG, QD
     Dates: start: 20030101, end: 20110704
  4. ZYPREXA [Suspect]
     Indication: BIPOLAR DISORDER
     Dosage: 10 MG, BID
     Route: 048
     Dates: start: 20010101
  5. LAMOTRIGINE [Concomitant]
     Indication: BIPOLAR DISORDER
     Dosage: 25 MG, 5 TIMES DAILY
     Route: 048
     Dates: start: 20050101
  6. TERCIAN [Concomitant]
     Dosage: 25 MG, QD
     Dates: start: 20010101, end: 20110704
  7. VFEND [Concomitant]
     Indication: ASPERGILLOSIS
     Dosage: 200 MG, BID
     Route: 048
     Dates: start: 20110628, end: 20110702
  8. MIRTAZAPINE [Concomitant]
     Dosage: 15 MG, BID
     Dates: start: 20030101, end: 20110702
  9. CITALOPRAM HYDROBROMIDE [Concomitant]
     Dosage: 20 MG, TID
     Dates: start: 20050101, end: 20110704

REACTIONS (7)
  - BRONCHITIS [None]
  - PANCYTOPENIA [None]
  - CHRONIC LYMPHOCYTIC LEUKAEMIA [None]
  - SEROTONIN SYNDROME [None]
  - CONVULSION [None]
  - LYMPHOPENIA [None]
  - RENAL FAILURE [None]
